FAERS Safety Report 6194806-9 (Version None)
Quarter: 2009Q2

REPORT INFORMATION
  Report Type: 
  Country: None (occurrence: None)
  Receive Date: 20090519
  Receipt Date: 20080616
  Transmission Date: 20091009
  Serious: No
  Sender: FDA-Public Use
  Company Number: US-TYCO HEALTHCARE/MALLINCKRODT-T200801022

PATIENT

DRUGS (14)
  1. METHADONE [Suspect]
     Indication: PAIN
     Dosage: 20 MG, TID
     Route: 048
     Dates: start: 20070101, end: 20080531
  2. CLONIDINE [Concomitant]
     Dosage: .1 MG, TID
     Route: 048
     Dates: start: 20080601
  3. LOVAZA [Concomitant]
     Indication: SUPPLEMENTATION THERAPY
     Dosage: UNK, QD
     Route: 048
  4. METHOTREXATE [Concomitant]
     Indication: DRUG USE FOR UNKNOWN INDICATION
     Dosage: .5 ML (CC), EVERY OTHER WEEK
     Route: 030
  5. PREDNISONE [Concomitant]
     Indication: PAIN
     Dosage: 5 MG, QD
     Route: 048
  6. REQUIP [Concomitant]
     Indication: RESTLESS LEGS SYNDROME
     Dosage: 2-3 MG, QD
     Route: 048
  7. ZETIA [Concomitant]
     Indication: DRUG USE FOR UNKNOWN INDICATION
     Dosage: UNK, QD
     Route: 048
  8. AMBIEN [Concomitant]
     Indication: SLEEP DISORDER
     Dosage: 10 MG, QD (HS)
     Route: 048
  9. NEXIUM [Concomitant]
     Indication: REFLUX OESOPHAGITIS
     Dosage: ONE, QD
     Route: 048
  10. SIMVASTATIN [Concomitant]
     Indication: DRUG USE FOR UNKNOWN INDICATION
     Dosage: 40 MG, QD
     Route: 048
  11. AMOXICILLIN [Concomitant]
     Indication: MOUTH ULCERATION
     Dosage: 500, TID (ALTERNATES Q OTHER DAY WITH BACTRIM)
     Route: 048
  12. BACTRIM [Concomitant]
     Indication: MOUTH ULCERATION
     Dosage: UNK, TID (ALTERNATES Q OTHER DAY WITH AMOXICILLIN)
     Route: 048
  13. NORCO [Concomitant]
  14. FORTEO [Concomitant]

REACTIONS (4)
  - ALOPECIA [None]
  - INSOMNIA [None]
  - PNEUMONIA [None]
  - WITHDRAWAL SYNDROME [None]
